FAERS Safety Report 16930287 (Version 2)
Quarter: 2019Q4

REPORT INFORMATION
  Report Type: Spontaneous
  Country: US (occurrence: US)
  Receive Date: 20191017
  Receipt Date: 20191025
  Transmission Date: 20200122
  Serious: Yes (Disabling, Congenital Anomaly, Other)
  Sender: FDA-Public Use
  Company Number: US-HIKMA PHARMACEUTICALS USA INC.-US-H14001-19-05342

PATIENT
  Age: 4 Year
  Sex: Female

DRUGS (2)
  1. MISOPROSTOL. [Concomitant]
     Active Substance: MISOPROSTOL
     Indication: ABORTION INDUCED
     Route: 064
  2. METHOTREXATE. [Suspect]
     Active Substance: METHOTREXATE
     Indication: ABORTION INDUCED
     Route: 064

REACTIONS (10)
  - Off label use [Recovered/Resolved]
  - Hypertelorism of orbit [Unknown]
  - Congenital foot malformation [Unknown]
  - Microcephaly [Unknown]
  - Foetal exposure during pregnancy [Recovered/Resolved]
  - Micrognathia [Unknown]
  - Teratogenicity [Unknown]
  - Clinodactyly [Unknown]
  - Microphthalmos [Unknown]
  - Congenital musculoskeletal anomaly [Unknown]
